FAERS Safety Report 11043075 (Version 2)
Quarter: 2015Q2

REPORT INFORMATION
  Report Type: Report from Study
  Country: US (occurrence: US)
  Receive Date: 20150417
  Receipt Date: 20150505
  Transmission Date: 20150821
  Serious: Yes (Hospitalization)
  Sender: FDA-Public Use
  Company Number: US-ROCHE-1563504

PATIENT
  Age: 71 Year
  Sex: Male
  Weight: 86.08 kg

DRUGS (20)
  1. PIOGLITAZONE [Concomitant]
     Active Substance: PIOGLITAZONE
     Route: 048
     Dates: start: 20101002
  2. PNEUMOVAX 23 [Concomitant]
     Active Substance: PNEUMOCOCCAL VACCINE, POLYVALENT 23
     Route: 065
     Dates: start: 20101007
  3. VALPROIC ACID. [Suspect]
     Active Substance: VALPROIC ACID
     Indication: LEIOMYOSARCOMA
     Route: 048
     Dates: start: 20100913, end: 20100916
  4. ASPIRIN ENTERIC COATED [Concomitant]
     Active Substance: ASPIRIN
     Route: 048
     Dates: start: 20101002
  5. DOCUSATE [Concomitant]
     Active Substance: DOCUSATE
     Route: 048
     Dates: start: 20101002
  6. POLYETHYLENE GLYCOL 3350. [Concomitant]
     Active Substance: POLYETHYLENE GLYCOL 3350
     Route: 048
     Dates: start: 20101007
  7. OMEPRAZOLE. [Concomitant]
     Active Substance: OMEPRAZOLE
     Dosage: ER
     Route: 048
     Dates: start: 20101002
  8. DEXTROSE, SODIUM CHLORIDE, AND POTASSIUM CHLORIDE [Concomitant]
     Active Substance: DEXTROSE\POTASSIUM CHLORIDE\SODIUM CHLORIDE
     Route: 040
     Dates: start: 20101001, end: 20101001
  9. VANCOMYCIN [Concomitant]
     Active Substance: VANCOMYCIN
     Dosage: 1250MG IN DSW 250ML
     Route: 042
     Dates: start: 20101001, end: 20101002
  10. INFLUENZA VACCINE [Concomitant]
     Active Substance: INFLUENZA VIRUS VACCINE
     Route: 065
     Dates: start: 20101007
  11. CIPRO [Concomitant]
     Active Substance: CIPROFLOXACIN HYDROCHLORIDE
     Route: 048
     Dates: start: 20101006, end: 20101022
  12. BEVACIZUMAB [Suspect]
     Active Substance: BEVACIZUMAB
     Indication: LEIOMYOSARCOMA
     Dosage: STRENGTH: 25 MG/ML?DOSE: 1200MG
     Route: 042
     Dates: start: 20100917
  13. VALPROIC ACID. [Suspect]
     Active Substance: VALPROIC ACID
     Dosage: 05/OCT/2010, WAS THE LAST DOSE OF VALPROIC ACID PRIOR TO SAE
     Route: 048
     Dates: start: 20101004
  14. PIPERACILLIN/TAZOBACTAM [Concomitant]
     Active Substance: PIPERACILLIN SODIUM\TAZOBACTAM SODIUM
     Route: 042
     Dates: start: 20101001, end: 20101002
  15. POLYETHYLENE GLYCOL 3350. [Concomitant]
     Active Substance: POLYETHYLENE GLYCOL 3350
     Route: 048
     Dates: start: 20101001, end: 20101002
  16. ZOSYN [Concomitant]
     Active Substance: PIPERACILLIN SODIUM\TAZOBACTAM SODIUM
     Route: 042
     Dates: start: 20101006, end: 20101006
  17. CIPROFLOXACIN. [Concomitant]
     Active Substance: CIPROFLOXACIN
     Route: 048
     Dates: start: 20101006
  18. MAGNESIUM SULFATE. [Concomitant]
     Active Substance: MAGNESIUM SULFATE
     Dosage: PRN
     Route: 048
     Dates: start: 20101006
  19. VANCOMYCIN [Concomitant]
     Active Substance: VANCOMYCIN
     Dosage: 1000 MG / 200 ML RTU IV BAG
     Route: 042
     Dates: start: 20101001, end: 20101001
  20. VANCOMYCIN [Concomitant]
     Active Substance: VANCOMYCIN
     Dosage: 1000 MG / 200 ML RTU IV BAG
     Route: 042
     Dates: start: 20101006, end: 20101009

REACTIONS (3)
  - Cellulitis [Recovered/Resolved]
  - Neurotoxicity [Recovered/Resolved]
  - Mental status changes [Unknown]

NARRATIVE: CASE EVENT DATE: 20101001
